FAERS Safety Report 9355757 (Version 1)
Quarter: 2013Q2

REPORT INFORMATION
  Report Type: Spontaneous
  Country: US (occurrence: US)
  Receive Date: 20130619
  Receipt Date: 20130619
  Transmission Date: 20140414
  Serious: Yes (Hospitalization, Other)
  Sender: FDA-Public Use
  Company Number: US-BAYER-2013-075304

PATIENT
  Age: 47 Year
  Sex: Female
  Weight: 81 kg

DRUGS (14)
  1. YAZ [Suspect]
  2. YASMIN [Suspect]
  3. LEVAQUIN [Concomitant]
     Indication: CELLULITIS
     Dosage: 500 MG, DAILY
     Route: 048
  4. TYLOX [Concomitant]
     Indication: ABDOMINAL PAIN
     Dosage: 2TAB AT NIGHT
     Route: 048
  5. TYLOX [Concomitant]
     Indication: BREAST PAIN
  6. DEPAKOTE [Concomitant]
     Route: 048
  7. TRAZODONE [Concomitant]
     Route: 048
  8. ZOMIG [Concomitant]
     Route: 048
  9. RELAFEN [Concomitant]
     Dosage: 500 MG, DAILY
     Route: 048
  10. VIOXX [Concomitant]
     Indication: NECK PAIN
     Dosage: UNK UNK, PRN
     Route: 048
  11. MIRAPEX [Concomitant]
     Dosage: 0.05 MG, UNK
     Route: 048
  12. ZYRTEC [Concomitant]
     Dosage: UNK UNK, PRN
     Route: 048
  13. ALLEGRA [Concomitant]
     Dosage: UNK UNK, PRN
     Route: 048
  14. IMITREX [Concomitant]
     Dosage: UNK UNK, PRN
     Route: 048

REACTIONS (3)
  - Pulmonary embolism [None]
  - Cholelithiasis [None]
  - Deep vein thrombosis [None]
